FAERS Safety Report 6399784-5 (Version None)
Quarter: 2009Q4

REPORT INFORMATION
  Report Type: 
  Country: None (occurrence: None)
  Receive Date: 20091014
  Receipt Date: 20091005
  Transmission Date: 20100525
  Serious: Yes (Other)
  Sender: FDA-Public Use
  Company Number: FR-ASTRAZENECA-2009SE18440

PATIENT
  Age: 29834 Day
  Sex: Female

DRUGS (6)
  1. XYLOCAINE [Suspect]
     Indication: LOCAL ANAESTHESIA
     Route: 030
     Dates: start: 20090818, end: 20090818
  2. APROVEL [Concomitant]
  3. CELECTOL [Concomitant]
  4. KARDEGIC [Concomitant]
  5. LIPANTHYL [Concomitant]
  6. DIFRAREL [Concomitant]

REACTIONS (2)
  - DYSARTHRIA [None]
  - OCULAR DISCOMFORT [None]
